FAERS Safety Report 8115010-0 (Version None)
Quarter: 2012Q1

REPORT INFORMATION
  Report Type: 
  Country: None (occurrence: None)
  Receive Date: 20120131
  Receipt Date: 20120125
  Transmission Date: 20120608
  Serious: Yes (Hospitalization, Other)
  Sender: FDA-Public Use
  Company Number: 2011SP037669

PATIENT
  Age: 72 Year
  Sex: Female

DRUGS (3)
  1. RIBAVIRIN [Suspect]
     Indication: HEPATITIS C
     Dates: start: 20110801, end: 20111125
  2. RIBAVIRIN [Suspect]
     Indication: HEPATITIS C
     Dates: start: 20050610, end: 20060610
  3. PEG-INTRON [Suspect]
     Indication: HEPATITIS
     Dates: start: 20110808, end: 20111125

REACTIONS (30)
  - HEPATITIS C [None]
  - DISEASE RECURRENCE [None]
  - CONDITION AGGRAVATED [None]
  - FEELING ABNORMAL [None]
  - BONE DISORDER [None]
  - SENSATION OF HEAVINESS [None]
  - MUSCLE DISORDER [None]
  - MALAISE [None]
  - HOMICIDAL IDEATION [None]
  - MEMORY IMPAIRMENT [None]
  - ABDOMINAL PAIN UPPER [None]
  - INSOMNIA [None]
  - DEPRESSION [None]
  - HYPOAESTHESIA [None]
  - ALOPECIA [None]
  - HAIR TEXTURE ABNORMAL [None]
  - ANGER [None]
  - FALL [None]
  - NERVOUS SYSTEM DISORDER [None]
  - VISUAL ACUITY REDUCED [None]
  - CHOLELITHIASIS [None]
  - CHOLECYSTITIS INFECTIVE [None]
  - SUICIDAL IDEATION [None]
  - MUSCULAR WEAKNESS [None]
  - ARTHROPATHY [None]
  - THERAPEUTIC RESPONSE DECREASED [None]
  - AGGRESSION [None]
  - BALANCE DISORDER [None]
  - GLAUCOMA [None]
  - FATIGUE [None]
